FAERS Safety Report 4344201-X (Version None)
Quarter: 2004Q2

REPORT INFORMATION
  Report Type: 
  Country: None (occurrence: None)
  Receive Date: 20040419
  Receipt Date: 20040405
  Transmission Date: 20050107
  Serious: Yes (Life-Threatening, Other)
  Sender: FDA-Public Use
  Company Number: 2004022981

PATIENT
  Age: 63 Year
  Sex: Male
  Weight: 100 kg

DRUGS (2)
  1. ZOLOFT [Suspect]
     Indication: DEPRESSION
     Dosage: 50 MG, ORAL
     Route: 048
     Dates: end: 20040128
  2. GABAPENTIN [Concomitant]

REACTIONS (6)
  - ALANINE AMINOTRANSFERASE INCREASED [None]
  - CARDIOVASCULAR DISORDER [None]
  - HYPERTHERMIA MALIGNANT [None]
  - LEUKOCYTOSIS [None]
  - SEROTONIN SYNDROME [None]
  - SOMNOLENCE [None]
